FAERS Safety Report 20817048 (Version 1)
Quarter: 2022Q2

REPORT INFORMATION
  Report Type: Spontaneous
  Country: US (occurrence: US)
  Receive Date: 20220512
  Receipt Date: 20220512
  Transmission Date: 20220721
  Serious: Yes (Other)
  Sender: FDA-Public Use
  Company Number: US-CELLTRION INC.-2022US006069

PATIENT

DRUGS (3)
  1. TRUXIMA [Suspect]
     Active Substance: RITUXIMAB-ABBS
     Indication: Sarcoidosis
     Dosage: 1000 MG
  2. TRUXIMA [Suspect]
     Active Substance: RITUXIMAB-ABBS
     Indication: Pulmonary sarcoidosis
     Dosage: 1000 MG, DAY 1
     Dates: start: 20220401
  3. TRUXIMA [Suspect]
     Active Substance: RITUXIMAB-ABBS
     Dosage: 1000 MG, DAY 15
     Dates: start: 20220420

REACTIONS (3)
  - Sarcoidosis [Unknown]
  - Pulmonary sarcoidosis [Unknown]
  - Off label use [Unknown]
